FAERS Safety Report 4913680-9 (Version None)
Quarter: 2006Q1

REPORT INFORMATION
  Report Type: 
  Country: None (occurrence: None)
  Receive Date: 20060210
  Receipt Date: 20060130
  Transmission Date: 20060701
  Serious: Yes (Other)
  Sender: FDA-Public Use
  Company Number: 2006016906

PATIENT
  Sex: Female

DRUGS (1)
  1. LOMOTIL [Suspect]
     Indication: DIARRHOEA
     Dosage: ORAL
     Route: 048
     Dates: start: 19720101

REACTIONS (3)
  - DIARRHOEA [None]
  - DRUG DOSE OMISSION [None]
  - GALLBLADDER OPERATION [None]
